FAERS Safety Report 6066278-6 (Version None)
Quarter: 2009Q1

REPORT INFORMATION
  Report Type: 
  Country: None (occurrence: None)
  Receive Date: 20090130
  Receipt Date: 20090116
  Transmission Date: 20090719
  Serious: Yes (Other)
  Sender: FDA-Public Use
  Company Number: DSJ-2009-01100

PATIENT
  Age: 34 Year
  Sex: Male

DRUGS (3)
  1. OFLOXACIN [Suspect]
     Indication: DRUG USE FOR UNKNOWN INDICATION
     Dosage: AURICULAR (OTIC)
     Route: 001
     Dates: start: 20070901, end: 20070101
  2. ANTIBIOTIC NOS (ANTIBIOTICS) [Concomitant]
  3. CORTICOSTEROID NOS (CORTICOSTEROID NOS) (CORTICOSTEROID NOS) [Concomitant]

REACTIONS (1)
  - DEAFNESS PERMANENT [None]
